FAERS Safety Report 19836844 (Version 2)
Quarter: 2021Q3

REPORT INFORMATION
  Report Type: Spontaneous
  Country: PL (occurrence: PL)
  Receive Date: 20210915
  Receipt Date: 20210922
  Transmission Date: 20211014
  Serious: Yes (Hospitalization, Other)
  Sender: FDA-Public Use
  Company Number: PL-MYLANLABS-2021M1062481

PATIENT
  Age: 67 Year
  Sex: Female

DRUGS (4)
  1. PANTOPRAZOLE [Suspect]
     Active Substance: PANTOPRAZOLE
     Indication: PRODUCT USED FOR UNKNOWN INDICATION
     Dosage: 20 MILLIGRAM, INTAKE AFTER A MEAL
     Route: 065
  2. ACETYLSALICYLIC ACID [Suspect]
     Active Substance: ASPIRIN
     Indication: PRODUCT USED FOR UNKNOWN INDICATION
     Dosage: 75 MILLIGRAM, INTAKE AFTER A MEAL
     Route: 065
  3. DICLOFENAC [Suspect]
     Active Substance: DICLOFENAC
     Indication: SPINAL OSTEOARTHRITIS
     Dosage: INTAKE AFTER A MEAL
     Route: 065
  4. DICLOFENAC [Suspect]
     Active Substance: DICLOFENAC
     Indication: ANTIINFLAMMATORY THERAPY
     Dosage: 75 MILLIGRAM, 3XMONTHS
     Route: 065

REACTIONS (6)
  - Melaena [Unknown]
  - Inappropriate schedule of product administration [Unknown]
  - Peptic ulcer [Unknown]
  - Anaemia [Unknown]
  - Gastric ulcer [Unknown]
  - Asthenia [Unknown]
